FAERS Safety Report 10377877 (Version 4)
Quarter: 2015Q1

REPORT INFORMATION
  Report Type: Spontaneous
  Country: US (occurrence: US)
  Receive Date: 20140812
  Receipt Date: 20150330
  Transmission Date: 20150720
  Serious: Yes (Other)
  Sender: FDA-Public Use
  Company Number: US-AMGEN-USASP2014060045

PATIENT
  Age: 88 Year
  Sex: Female
  Weight: 67.49 kg

DRUGS (8)
  1. PROLIA [Suspect]
     Active Substance: DENOSUMAB
     Indication: OSTEOPOROSIS POSTMENOPAUSAL
     Dosage: 60 UNK, Q6MO
     Route: 058
     Dates: start: 20140210, end: 201407
  2. TYLENOL [Concomitant]
     Active Substance: ACETAMINOPHEN
  3. MULTIVITAMIN                       /00097801/ [Concomitant]
     Active Substance: VITAMINS
  4. VERAPAMIL [Concomitant]
     Active Substance: VERAPAMIL HYDROCHLORIDE
     Dosage: 180 MG, UNK
  5. COUMADIN [Concomitant]
     Active Substance: WARFARIN SODIUM
     Dosage: 5 MG, UNK
  6. LASIX [Concomitant]
     Active Substance: FUROSEMIDE
     Dosage: 40 MG, UNK
  7. FOLIC ACID. [Concomitant]
     Active Substance: FOLIC ACID
  8. KCL [Concomitant]
     Active Substance: POTASSIUM CHLORIDE

REACTIONS (9)
  - Cervix carcinoma [Unknown]
  - Aortic valve replacement [Unknown]
  - Jaw disorder [Not Recovered/Not Resolved]
  - Bone pain [Recovering/Resolving]
  - Tooth disorder [Recovering/Resolving]
  - Cardiac pacemaker insertion [Unknown]
  - Osteonecrosis of jaw [Not Recovered/Not Resolved]
  - Drug hypersensitivity [Unknown]
  - Myalgia [Recovering/Resolving]

NARRATIVE: CASE EVENT DATE: 201403
